FAERS Safety Report 4319447-7 (Version None)
Quarter: 2004Q1

REPORT INFORMATION
  Report Type: 
  Country: None (occurrence: None)
  Receive Date: 20040316
  Receipt Date: 20040227
  Transmission Date: 20041129
  Serious: Yes (Death)
  Sender: FDA-Public Use
  Company Number: USA040360678

PATIENT
  Age: 76 Year
  Sex: Female
  Weight: 69 kg

DRUGS (11)
  1. XIGRIS [Suspect]
     Indication: SEPSIS
     Dosage: 24 UG/KG/HR
     Dates: start: 20030917
  2. LEVOPHED [Concomitant]
  3. AMIODARONE HCL [Concomitant]
  4. VANCOMYCIN HYDROCHLORIDE [Concomitant]
  5. PRIMAXIN [Concomitant]
  6. PEPCID [Concomitant]
  7. SOLU-MEDROL [Concomitant]
  8. TYLENOL [Concomitant]
  9. NTG(GLYCERYL TRINITRATE) [Concomitant]
  10. HYZAAR [Concomitant]
  11. VERAPAMIL [Concomitant]

REACTIONS (3)
  - ARRHYTHMIA [None]
  - INTERNATIONAL NORMALISED RATIO INCREASED [None]
  - PROTHROMBIN TIME PROLONGED [None]
